FAERS Safety Report 21905657 (Version 1)
Quarter: 2023Q1

REPORT INFORMATION
  Report Type: Spontaneous
  Country: US (occurrence: None)
  Receive Date: 20230124
  Receipt Date: 20230124
  Transmission Date: 20230418
  Serious: Yes (Life-Threatening, Hospitalization, Disabling)
  Sender: FDA-Public Use
  Company Number: None

PATIENT
  Age: 36 Year
  Sex: Female
  Weight: 124.65 kg

DRUGS (5)
  1. TOPIRAMATE [Suspect]
     Active Substance: TOPIRAMATE
     Indication: Migraine
     Dosage: FREQUENCY : DAILY;?
     Route: 048
  2. CYMBALTA [Concomitant]
     Active Substance: DULOXETINE HYDROCHLORIDE
  3. MOBIC [Concomitant]
     Active Substance: MELOXICAM
  4. METFORMIN [Concomitant]
     Active Substance: METFORMIN HYDROCHLORIDE
  5. VERAPAMIL [Concomitant]
     Active Substance: VERAPAMIL HYDROCHLORIDE

REACTIONS (2)
  - Toxic epidermal necrolysis [None]
  - Stevens-Johnson syndrome [None]

NARRATIVE: CASE EVENT DATE: 20230108
